FAERS Safety Report 20963755 (Version 1)
Quarter: 2022Q2

REPORT INFORMATION
  Report Type: Spontaneous
  Country: IT (occurrence: IT)
  Receive Date: 20220615
  Receipt Date: 20220615
  Transmission Date: 20220721
  Serious: Yes (Other)
  Sender: FDA-Public Use
  Company Number: IT-PFIZER INC-202200800480

PATIENT
  Sex: Female
  Weight: 55 kg

DRUGS (19)
  1. AVIBACTAM SODIUM\CEFTAZIDIME [Suspect]
     Active Substance: AVIBACTAM SODIUM\CEFTAZIDIME
     Indication: Pneumonia
     Dosage: 7.5 G, QD
     Route: 042
     Dates: start: 20220518, end: 20220520
  2. BRONCHITOL [Concomitant]
     Active Substance: MANNITOL
     Dosage: 800 MG
     Route: 048
  3. CETIRIZINE [Concomitant]
     Active Substance: CETIRIZINE HYDROCHLORIDE
     Dosage: 10 MG
     Route: 048
     Dates: start: 20201119, end: 20220520
  4. COLFINAIR [Concomitant]
     Dosage: 4 MIU
     Route: 055
     Dates: start: 20151007, end: 20220520
  5. PREDNISONE [Concomitant]
     Active Substance: PREDNISONE
     Dosage: 12.5 MG
     Route: 048
     Dates: start: 20190814, end: 20220520
  6. CHOLECALCIFEROL [Concomitant]
     Active Substance: CHOLECALCIFEROL
     Dosage: 50 KIU
     Route: 048
  7. ELTAIR [Concomitant]
     Dosage: 200 UG
     Route: 055
     Dates: start: 20150713, end: 20220520
  8. OMEGA-3 FATTY ACIDS [Concomitant]
     Active Substance: OMEGA-3 FATTY ACIDS
     Dosage: 3 G
     Route: 048
  9. FLUIMUCIL [Concomitant]
     Active Substance: ACETYLCYSTEINE
     Dosage: 1200 MG
     Route: 048
     Dates: start: 20130118, end: 20220520
  10. FOSTER [Concomitant]
     Active Substance: BECLOMETHASONE\FORMOTEROL
     Dosage: 2 DF
     Route: 055
     Dates: start: 20170119, end: 20220520
  11. ELEXACAFTOR\IVACAFTOR\TEZACAFTOR [Concomitant]
     Active Substance: ELEXACAFTOR\IVACAFTOR\TEZACAFTOR
     Indication: Cystic fibrosis
     Dosage: 2 DF
     Route: 048
     Dates: start: 20210226, end: 20220520
  12. KALYDECO [Concomitant]
     Active Substance: IVACAFTOR
     Indication: Cystic fibrosis
     Dosage: 150 MG
     Route: 048
     Dates: start: 20210226, end: 20220520
  13. MOVICOL [Concomitant]
     Active Substance: POLYETHYLENE GLYCOL 3350\POTASSIUM CHLORIDE\SODIUM BICARBONATE\SODIUM CHLORIDE
     Dosage: 2 DF
     Route: 048
     Dates: start: 20160713, end: 20220520
  14. PANTOPRAZOLE [Concomitant]
     Active Substance: PANTOPRAZOLE
     Dosage: 20 MG
     Route: 048
     Dates: start: 20150807, end: 20220520
  15. PULMOZYME [Concomitant]
     Active Substance: DORNASE ALFA
     Dosage: 2.5 MG
     Route: 055
     Dates: start: 20160714, end: 20220520
  16. TOBRAMYCIN [Concomitant]
     Active Substance: TOBRAMYCIN
     Indication: Pneumonia pseudomonal
     Dosage: 500 MG
     Route: 042
     Dates: start: 20220518, end: 20220520
  17. VENTOLIN [Concomitant]
     Active Substance: ALBUTEROL SULFATE
     Dosage: 400 UG
     Route: 055
     Dates: start: 20031212, end: 20220520
  18. AZITHROMYCIN [Concomitant]
     Active Substance: AZITHROMYCIN
     Route: 048
     Dates: start: 20090915, end: 20220520
  19. ALLOPURINOL [Concomitant]
     Active Substance: ALLOPURINOL
     Dosage: 150 MG
     Route: 048
     Dates: start: 20201124, end: 20220520

REACTIONS (3)
  - Eyelid oedema [Recovered/Resolved]
  - Pruritus [Recovered/Resolved]
  - Flushing [Recovered/Resolved]

NARRATIVE: CASE EVENT DATE: 20220520
